FAERS Safety Report 4983434-6 (Version None)
Quarter: 2006Q2

REPORT INFORMATION
  Report Type: 
  Country: None (occurrence: None)
  Receive Date: 20060426
  Receipt Date: 20060418
  Transmission Date: 20061013
  Serious: Yes (Other)
  Sender: FDA-Public Use
  Company Number: JP-MERCK-0604USA03380

PATIENT
  Age: 70 Year
  Sex: Female

DRUGS (6)
  1. COZAAR [Suspect]
     Route: 048
     Dates: start: 20060405
  2. NORVASC [Concomitant]
     Route: 065
  3. CERCINE [Concomitant]
     Route: 065
  4. SELBEX [Concomitant]
     Route: 048
  5. BONALON [Concomitant]
     Route: 048
  6. [THERAPY UNSPECIFIED] [Concomitant]
     Route: 065

REACTIONS (1)
  - PANCYTOPENIA [None]
